FAERS Safety Report 7418975-5 (Version None)
Quarter: 2011Q2

REPORT INFORMATION
  Report Type: 
  Country: None (occurrence: None)
  Receive Date: 20110415
  Receipt Date: 20110404
  Transmission Date: 20111010
  Serious: Yes (Hospitalization, Other)
  Sender: FDA-Public Use
  Company Number: US-ELI_LILLY_AND_COMPANY-US201008006784

PATIENT
  Sex: Female

DRUGS (2)
  1. FORTEO [Suspect]
     Indication: OSTEOPOROSIS
     Dosage: 20 UG, QD
     Dates: start: 20100301
  2. FORTEO [Suspect]
     Dosage: 20 UG, QD

REACTIONS (12)
  - INSOMNIA [None]
  - HEADACHE [None]
  - BONE PAIN [None]
  - EYE PAIN [None]
  - MALAISE [None]
  - VISUAL IMPAIRMENT [None]
  - ARTHRALGIA [None]
  - KNEE ARTHROPLASTY [None]
  - INJECTION SITE PAIN [None]
  - DIZZINESS [None]
  - FALL [None]
  - RIB FRACTURE [None]
